FAERS Safety Report 10749155 (Version 3)
Quarter: 2015Q1

REPORT INFORMATION
  Report Type: Spontaneous
  Country: DE (occurrence: DE)
  Receive Date: 20150129
  Receipt Date: 20150220
  Transmission Date: 20150721
  Serious: Yes (Hospitalization, Other)
  Sender: FDA-Public Use
  Company Number: DE-GILEAD-2015-0133370

PATIENT
  Age: 80 Year
  Sex: Male
  Weight: 62 kg

DRUGS (3)
  1. ZYDELIG [Suspect]
     Active Substance: IDELALISIB
     Indication: PRODUCT USED FOR UNKNOWN INDICATION
     Route: 065
  2. ZOMETA [Concomitant]
     Active Substance: ZOLEDRONIC ACID
     Dosage: UNK
     Dates: start: 20150114, end: 20150114
  3. RITUXIMAB [Concomitant]
     Active Substance: RITUXIMAB

REACTIONS (8)
  - Oesophageal candidiasis [Recovering/Resolving]
  - Vomiting [Recovering/Resolving]
  - General physical health deterioration [Recovering/Resolving]
  - Chills [Recovering/Resolving]
  - Lung infection [Recovering/Resolving]
  - Pyrexia [Recovering/Resolving]
  - Helicobacter gastritis [Recovering/Resolving]
  - Malaise [Recovering/Resolving]

NARRATIVE: CASE EVENT DATE: 20150113
